FAERS Safety Report 9626747 (Version 3)
Quarter: 2013Q4

REPORT INFORMATION
  Report Type: Report from Study
  Country: US (occurrence: US)
  Receive Date: 20131016
  Receipt Date: 20131119
  Transmission Date: 20140711
  Serious: Yes (Hospitalization)
  Sender: FDA-Public Use
  Company Number: US-JNJFOC-20131006167

PATIENT
  Age: 17 Year
  Sex: Female
  Weight: 52.5 kg

DRUGS (16)
  1. REMICADE [Suspect]
     Indication: INFLAMMATORY BOWEL DISEASE
     Route: 042
     Dates: start: 20110518
  2. ZOLOFT [Concomitant]
     Route: 065
  3. LOESTRIN [Concomitant]
     Route: 065
  4. VICODIN [Concomitant]
     Route: 065
  5. LOVENOX [Concomitant]
     Route: 065
  6. NEURONTIN [Concomitant]
     Route: 065
  7. ATIVAN [Concomitant]
     Route: 065
  8. TORADOL [Concomitant]
     Route: 065
  9. DILAUDID [Concomitant]
     Route: 065
  10. BENADRYL [Concomitant]
     Route: 065
  11. ZOFRAN [Concomitant]
     Route: 065
  12. PROCHLORPERAZINE [Concomitant]
     Route: 065
  13. NEOMYCIN [Concomitant]
     Route: 065
  14. OMEPRAZOLE [Concomitant]
     Route: 065
  15. NIFEREX [Concomitant]
     Route: 065
  16. ACETAMINOPHEN [Concomitant]
     Route: 065

REACTIONS (1)
  - Incisional hernia [Recovered/Resolved]
